FAERS Safety Report 20763859 (Version 1)
Quarter: 2022Q2

REPORT INFORMATION
  Report Type: Spontaneous
  Country: AE (occurrence: AE)
  Receive Date: 20220428
  Receipt Date: 20220428
  Transmission Date: 20220721
  Serious: Yes (Death, Other)
  Sender: FDA-Public Use
  Company Number: AE-AMGEN-ARESP2022068979

PATIENT

DRUGS (3)
  1. FILGRASTIM [Suspect]
     Active Substance: FILGRASTIM
     Indication: Product used for unknown indication
     Dosage: UNK
     Route: 065
  2. ROMIPLOSTIM [Suspect]
     Active Substance: ROMIPLOSTIM
     Indication: Product used for unknown indication
     Dosage: UNK
     Route: 065
  3. ADALIMUMAB [Suspect]
     Active Substance: ADALIMUMAB
     Indication: Product used for unknown indication
     Dosage: UNK
     Route: 065

REACTIONS (23)
  - Death [Fatal]
  - Bronchiectasis [Unknown]
  - Neoplasm [Unknown]
  - Epstein-Barr virus associated lymphoma [Unknown]
  - B-cell lymphoma [Unknown]
  - Acute lymphocytic leukaemia [Unknown]
  - Extranodal marginal zone B-cell lymphoma (MALT type) [Unknown]
  - Epstein-Barr virus associated lymphoproliferative disorder [Unknown]
  - Adenocarcinoma [Unknown]
  - Squamous cell carcinoma of the tongue [Unknown]
  - Tuberculosis [Unknown]
  - Gastroenteritis rotavirus [Unknown]
  - Measles [Unknown]
  - Varicella [Unknown]
  - Pneumothorax [Unknown]
  - Pulmonary fibrosis [Unknown]
  - Hypoacusis [Unknown]
  - Blindness [Unknown]
  - Cytomegalovirus chorioretinitis [Unknown]
  - Acute kidney injury [Unknown]
  - Malabsorption [Unknown]
  - Portal hypertension [Unknown]
  - Cytomegalovirus colitis [Unknown]
